FAERS Safety Report 14530026 (Version 2)
Quarter: 2018Q1

REPORT INFORMATION
  Report Type: Spontaneous
  Country: SI (occurrence: SI)
  Receive Date: 20180214
  Receipt Date: 20180221
  Transmission Date: 20180509
  Serious: Yes (Life-Threatening, Hospitalization)
  Sender: FDA-Public Use
  Company Number: SI-PFIZER INC-2018063600

PATIENT
  Age: 81 Year
  Sex: Female

DRUGS (12)
  1. BRILIQUE [Concomitant]
     Active Substance: TICAGRELOR
     Dosage: UNK
  2. IVABRADINE [Suspect]
     Active Substance: IVABRADINE
     Dosage: UNK
     Dates: start: 201801
  3. ALDACTONE [Suspect]
     Active Substance: SPIRONOLACTONE
     Dosage: 25 MG, DAILY
     Route: 048
     Dates: start: 201801
  4. DIUVER [Concomitant]
     Active Substance: TORSEMIDE
     Dosage: UNK
  5. IVABRADINE [Suspect]
     Active Substance: IVABRADINE
     Dosage: UNK
     Dates: start: 201712
  6. ASPIRIN. [Concomitant]
     Active Substance: ASPIRIN
     Dosage: UNK
  7. CORDARONE [Suspect]
     Active Substance: AMIODARONE HYDROCHLORIDE
     Indication: ATRIAL FIBRILLATION
     Dosage: UNK
     Dates: start: 201712
  8. ALDACTONE [Suspect]
     Active Substance: SPIRONOLACTONE
     Indication: ATRIAL FIBRILLATION
     Dosage: UNK
     Dates: start: 201712
  9. PROCORALAN [Suspect]
     Active Substance: IVABRADINE
     Dosage: 5 MG, DAILY
     Route: 048
     Dates: start: 201801
  10. ATORVASTATIN [Concomitant]
     Active Substance: ATORVASTATIN
     Dosage: UNK
  11. CORDARONE [Suspect]
     Active Substance: AMIODARONE HYDROCHLORIDE
     Dosage: 200 MG, 1X/DAY
     Route: 048
     Dates: start: 201801
  12. PROCORALAN [Suspect]
     Active Substance: IVABRADINE
     Indication: ATRIAL FIBRILLATION
     Dosage: UNK
     Dates: start: 201712

REACTIONS (3)
  - Renal failure [Unknown]
  - Bradycardia [Recovering/Resolving]
  - Hyperkalaemia [Recovering/Resolving]

NARRATIVE: CASE EVENT DATE: 201712
